FAERS Safety Report 22525731 (Version 1)
Quarter: 2023Q2

REPORT INFORMATION
  Report Type: Spontaneous
  Country: US (occurrence: None)
  Receive Date: 20230605
  Receipt Date: 20230605
  Transmission Date: 20230722
  Serious: Yes (Other)
  Sender: FDA-Public Use
  Company Number: None

PATIENT
  Age: 48 Year
  Sex: Female
  Weight: 71.1 kg

DRUGS (2)
  1. VIVITROL [Suspect]
     Active Substance: NALTREXONE
     Indication: Drug dependence
     Dosage: 4 ML MONTYLY INTRAMUSCULAR
     Route: 030
     Dates: start: 20230505, end: 20230526
  2. VIVITROL [Suspect]
     Active Substance: NALTREXONE
     Indication: Alcoholism

REACTIONS (5)
  - Myositis [None]
  - Pain [None]
  - Discomfort [None]
  - Withdrawal syndrome [None]
  - Pain [None]

NARRATIVE: CASE EVENT DATE: 20230526
